FAERS Safety Report 9284069 (Version 4)
Quarter: 2013Q3

REPORT INFORMATION
  Report Type: Report from Study
  Country: AU (occurrence: AU)
  Receive Date: 20130510
  Receipt Date: 20130710
  Transmission Date: 20140515
  Serious: Yes (Other)
  Sender: FDA-Public Use
  Company Number: PHHY2011AU117968

PATIENT
  Sex: Male
  Weight: 96 kg

DRUGS (2)
  1. EXJADE [Suspect]
     Indication: MYELODYSPLASTIC SYNDROME
     Dosage: 4000 MG, (THREE TIMES A DAY)
     Route: 048
     Dates: start: 20060901
  2. ANTIDIURETIC HORMONE [Concomitant]
     Dosage: SMALL DOSE IN MORNING

REACTIONS (6)
  - Splenomegaly [Unknown]
  - Memory impairment [Unknown]
  - Serum ferritin increased [Unknown]
  - Abdominal discomfort [Unknown]
  - Diarrhoea [Unknown]
  - Overdose [Unknown]
